FAERS Safety Report 18503018 (Version 1)
Quarter: 2020Q4

REPORT INFORMATION
  Report Type: Spontaneous
  Country: FR (occurrence: FR)
  Receive Date: 20201113
  Receipt Date: 20201113
  Transmission Date: 20210114
  Serious: Yes (Hospitalization)
  Sender: FDA-Public Use
  Company Number: FR-GLAXOSMITHKLINE-FR2020222764

PATIENT
  Age: 15 Year
  Sex: Male
  Weight: 53 kg

DRUGS (8)
  1. FOLIC ACID. [Suspect]
     Active Substance: FOLIC ACID
     Indication: INTENTIONAL OVERDOSE
     Dosage: 4 DF, PRN
     Route: 048
     Dates: start: 20201027, end: 20201028
  2. LYRICA [Suspect]
     Active Substance: PREGABALIN
     Indication: INTENTIONAL OVERDOSE
     Dosage: 6 DF, PRN
     Route: 048
     Dates: start: 20201027, end: 20201028
  3. DEROXAT [Suspect]
     Active Substance: PAROXETINE HYDROCHLORIDE
     Indication: INTENTIONAL OVERDOSE
     Dosage: 2 DF,PRN
     Route: 048
     Dates: start: 20201027, end: 20201028
  4. DOLIPRANE [Suspect]
     Active Substance: ACETAMINOPHEN
     Indication: INTENTIONAL OVERDOSE
     Dosage: 4 DF, PRN
     Route: 048
     Dates: start: 20201027, end: 20201028
  5. CLARITYNE [Suspect]
     Active Substance: LORATADINE
     Indication: INTENTIONAL OVERDOSE
     Dosage: 4 DF, PRN
     Route: 048
     Dates: start: 20201027, end: 20201028
  6. VALIUM [Suspect]
     Active Substance: DIAZEPAM
     Indication: INTENTIONAL OVERDOSE
     Dosage: 15 DF,PRN
     Route: 048
     Dates: start: 20201027, end: 20201028
  7. ACICLOVIR [Suspect]
     Active Substance: ACYCLOVIR
     Indication: INTENTIONAL OVERDOSE
     Dosage: 2 DF, PRN
     Route: 048
     Dates: start: 20201027, end: 20201028
  8. SOLUPRED (PREDNISOLONE) [Suspect]
     Active Substance: PREDNISOLONE
     Indication: INTENTIONAL OVERDOSE
     Dosage: 5 DF
     Route: 048
     Dates: start: 20201027, end: 20201028

REACTIONS (2)
  - Somnolence [Recovered/Resolved]
  - Intentional overdose [Recovered/Resolved]

NARRATIVE: CASE EVENT DATE: 20201027
